FAERS Safety Report 4945709-6 (Version None)
Quarter: 2006Q1

REPORT INFORMATION
  Report Type: 
  Country: None (occurrence: None)
  Receive Date: 20060117
  Receipt Date: 20050425
  Transmission Date: 20060701
  Serious: Yes (Other)
  Sender: FDA-Public Use
  Company Number: A03200501215

PATIENT
  Age: 75 Year
  Sex: Male
  Weight: 63.49 kg

DRUGS (12)
  1. PLAVIX [Suspect]
     Indication: ACUTE MYOCARDIAL INFARCTION
     Dosage: 75 MG QD - ORAL
     Route: 048
     Dates: start: 20031109, end: 20050101
  2. PLAVIX [Suspect]
     Indication: STENT PLACEMENT
     Dosage: 75 MG QD - ORAL
     Route: 048
     Dates: start: 20031109, end: 20050101
  3. ASPIRIN [Suspect]
     Indication: ACUTE MYOCARDIAL INFARCTION
     Dosage: 81 MG QD - ORAL
     Route: 048
     Dates: start: 20031109
  4. COUMADIN [Suspect]
     Indication: ACUTE MYOCARDIAL INFARCTION
     Dosage: ORAL
     Route: 048
     Dates: start: 20031109, end: 20040102
  5. PRIMIDONE [Concomitant]
  6. AMIODARONE HCL [Concomitant]
  7. CARVEDILOL [Concomitant]
  8. LOSARTAN POTASSIUM [Concomitant]
  9. ATORVASTATIN CALCIUM [Concomitant]
  10. ZOLPIDEM TARTRATE [Concomitant]
  11. FEXOFENADINE HYDROCHLORIDE [Concomitant]
  12. FINASTERIDE [Concomitant]

REACTIONS (5)
  - CARDIAC FAILURE CONGESTIVE [None]
  - GASTROINTESTINAL HAEMORRHAGE [None]
  - HAEMORRHOIDS [None]
  - RECTAL HAEMORRHAGE [None]
  - VERTIGO [None]
